FAERS Safety Report 23462659 (Version 1)
Quarter: 2024Q1

REPORT INFORMATION
  Report Type: Spontaneous
  Country: CN (occurrence: CN)
  Receive Date: 20240131
  Receipt Date: 20240131
  Transmission Date: 20240410
  Serious: Yes (Hospitalization)
  Sender: FDA-Public Use
  Company Number: CN-Merck Healthcare KGaA-2024003723

PATIENT
  Age: 75 Year
  Sex: Female
  Weight: 46 kg

DRUGS (6)
  1. ERBITUX [Suspect]
     Active Substance: CETUXIMAB
     Indication: Colon cancer
     Dosage: 300 MG, UNK
     Route: 041
     Dates: start: 20240110
  2. OXALIPLATIN [Suspect]
     Active Substance: OXALIPLATIN
     Indication: Colon cancer
     Dosage: 0.1 G, DAILY
     Route: 041
     Dates: start: 20240111, end: 20240111
  3. MANNITOL [Suspect]
     Active Substance: MANNITOL
     Indication: Colon cancer
     Dosage: 0.1 G, DAILY
     Route: 041
     Dates: start: 20240111, end: 20240111
  4. FLUOROURACIL [Suspect]
     Active Substance: FLUOROURACIL
     Indication: Colon cancer
     Dosage: 0.4 G, DAILY
     Route: 041
     Dates: start: 20240111, end: 20240111
  5. FLUOROURACIL [Suspect]
     Active Substance: FLUOROURACIL
     Dosage: 3 G, DAILY
     Route: 041
     Dates: start: 20240111, end: 20240113
  6. LEUCOVORIN CALCIUM [Concomitant]
     Active Substance: LEUCOVORIN CALCIUM
     Indication: Colon cancer
     Dosage: 0.4 G, DAILY
     Route: 041
     Dates: start: 20240111, end: 20240111

REACTIONS (2)
  - White blood cell count decreased [Recovering/Resolving]
  - Neutrophil count decreased [Recovering/Resolving]

NARRATIVE: CASE EVENT DATE: 20240114
